FAERS Safety Report 26175334 (Version 1)
Quarter: 2025Q4

REPORT INFORMATION
  Report Type: Spontaneous
  Country: CH (occurrence: CH)
  Receive Date: 20251218
  Receipt Date: 20251218
  Transmission Date: 20260118
  Serious: Yes (Other)
  Sender: AMGEN
  Company Number: CH-AMGEN-CHESP2025246951

PATIENT

DRUGS (3)
  1. PROLIA [Suspect]
     Active Substance: DENOSUMAB
     Indication: Osteoporosis postmenopausal
     Dosage: 60 MILLIGRAM  EVERY 26 WEEKS
     Route: 065
  2. CALCIUM [Concomitant]
     Active Substance: CALCIUM
     Indication: Osteoporosis postmenopausal
     Dosage: 1000 MILLIGRAM, QD
     Route: 065
  3. VITAMIN D [Concomitant]
     Active Substance: VITAMIN D NOS
     Indication: Osteoporosis postmenopausal
     Dosage: }400 IU, QD
     Route: 065

REACTIONS (16)
  - Ovarian cancer [Unknown]
  - Femur fracture [Unknown]
  - Hip fracture [Unknown]
  - Arthralgia [Unknown]
  - COVID-19 [Unknown]
  - Balance disorder [Unknown]
  - Adverse event [Unknown]
  - Nasopharyngitis [Unknown]
  - Upper respiratory tract infection [Unknown]
  - Urinary tract infection [Unknown]
  - Headache [Unknown]
  - Injection site reaction [Unknown]
  - Fracture [Unknown]
  - Nervous system disorder [Unknown]
  - Infection [Unknown]
  - Infestation [Unknown]
